FAERS Safety Report 13658561 (Version 2)
Quarter: 2017Q4

REPORT INFORMATION
  Report Type: Spontaneous
  Country: US (occurrence: US)
  Receive Date: 20170616
  Receipt Date: 20171115
  Transmission Date: 20180320
  Serious: Yes (Hospitalization)
  Sender: FDA-Public Use
  Company Number: US-PFIZER INC-2017262561

PATIENT
  Age: 74 Year
  Sex: Female
  Weight: 113 kg

DRUGS (14)
  1. LEVOTHYROXINE. [Concomitant]
     Active Substance: LEVOTHYROXINE
     Indication: THYROID HORMONES DECREASED
     Dosage: 0.025 MG, 1X/DAY
  2. WARFIN [Concomitant]
     Active Substance: WARFARIN
     Dosage: 8 MG, WEEKLY, (2 MG 4 DAYS/ WEEK)
  3. GABAPENTIN. [Suspect]
     Active Substance: GABAPENTIN
     Indication: NEUROPATHY PERIPHERAL
     Dosage: 900 MG, 3X/DAY (3-300 MG CAPS 3X DAY)
  4. WARFIN [Concomitant]
     Active Substance: WARFARIN
     Dosage: 12 MG, WEEKLY, (4 MG 3 DAYS/WEEK)
  5. VERAPAMIL [Concomitant]
     Active Substance: VERAPAMIL HYDROCHLORIDE
     Indication: BLOOD PRESSURE ABNORMAL
     Dosage: 120 MG, 1X/DAY
  6. WARFIN [Concomitant]
     Active Substance: WARFARIN
     Dosage: 4 MG, 1X/DAY MONDAY, WEDNESDAY, AND FRIDAY
  7. VERAPAMIL [Concomitant]
     Active Substance: VERAPAMIL HYDROCHLORIDE
     Indication: HYPERTENSION
     Dosage: 240 MG, 1X/DAY
  8. GABAPENTIN. [Suspect]
     Active Substance: GABAPENTIN
     Indication: NEURALGIA
     Dosage: 600 MG, 3X/DAY
  9. TYLENOL [Concomitant]
     Active Substance: ACETAMINOPHEN
     Indication: BACK PAIN
     Dosage: 2 DF, 3X/DAY
     Dates: start: 2016
  10. TYLENOL [Concomitant]
     Active Substance: ACETAMINOPHEN
     Indication: PAIN
     Dosage: 200 MG, 3X/DAY
     Dates: start: 201602
  11. TYLENOL [Concomitant]
     Active Substance: ACETAMINOPHEN
     Indication: PAIN
  12. TRIAMTERENE AND HYDROCHLOROTHIAZIDE [Concomitant]
     Active Substance: HYDROCHLOROTHIAZIDE\TRIAMTERENE
     Indication: BLOOD PRESSURE ABNORMAL
     Dosage: UNK UNK, 1X/DAY, [TRIAMTERENE 37.5 MG]/[ HYDROCHLOROTHIAZIDE 25 MG]
  13. WARFIN [Concomitant]
     Active Substance: WARFARIN
     Indication: ATRIAL FIBRILLATION
     Dosage: 2 MG, 1X/DAY, AT NIGHT  SATURDAY, SUNDAY, TUESDAY, AND THURSDAY,
     Dates: start: 2008
  14. OMEPRAZOLE. [Concomitant]
     Active Substance: OMEPRAZOLE
     Indication: HIATUS HERNIA
     Dosage: 20 MG, 1X/DAY

REACTIONS (2)
  - Pain in extremity [Not Recovered/Not Resolved]
  - Drug ineffective for unapproved indication [Not Recovered/Not Resolved]

NARRATIVE: CASE EVENT DATE: 2002
